FAERS Safety Report 5221037-9 (Version None)
Quarter: 2007Q1

REPORT INFORMATION
  Report Type: 
  Country: None (occurrence: None)
  Receive Date: 20070123
  Receipt Date: 20070117
  Transmission Date: 20070707
  Serious: Yes (Death, Other)
  Sender: FDA-Public Use
  Company Number: 167-20785-07010799

PATIENT

DRUGS (4)
  1. THALOMID [Suspect]
     Indication: AMYLOIDOSIS
     Dosage: 200MG STARTING DOSE, 100MG/DAY, ORAL; 200 MG STARTING, 50MG/DAILY, ORAL
     Route: 048
     Dates: start: 20000101, end: 20050801
  2. THALOMID [Suspect]
     Indication: AMYLOIDOSIS
     Dosage: 200MG STARTING DOSE, 100MG/DAY, ORAL; 200 MG STARTING, 50MG/DAILY, ORAL
     Route: 048
     Dates: start: 20000101, end: 20050801
  3. CYCLOPHOSPHAMIDE [Suspect]
     Indication: AMYLOIDOSIS
     Dosage: 500MG ONCE WEEKLY,
     Dates: start: 20000101, end: 20050801
  4. DEXAMETHASONE TAB [Suspect]
     Indication: AMYLOIDOSIS
     Dosage: 40MG DAYS 1-4, 9-12, ; 20MG DAYS 1-4, 15-18
     Dates: start: 20000101, end: 20050801

REACTIONS (16)
  - CARDIAC FAILURE CONGESTIVE [None]
  - CONDITION AGGRAVATED [None]
  - CONSTIPATION [None]
  - DIZZINESS [None]
  - DRUG TOXICITY [None]
  - FATIGUE [None]
  - FLUID RETENTION [None]
  - GASTROINTESTINAL HAEMORRHAGE [None]
  - INFECTION [None]
  - MULTI-ORGAN FAILURE [None]
  - NEUROPATHY PERIPHERAL [None]
  - PANCYTOPENIA [None]
  - PULMONARY EMBOLISM [None]
  - SOMNOLENCE [None]
  - THROMBOSIS [None]
  - TREMOR [None]
